FAERS Safety Report 23111617 (Version 1)
Quarter: 2023Q4

REPORT INFORMATION
  Report Type: Spontaneous
  Country: AU (occurrence: AU)
  Receive Date: 20231026
  Receipt Date: 20231026
  Transmission Date: 20240110
  Serious: Yes (Other)
  Sender: FDA-Public Use
  Company Number: AU-002147023-NVSC2023AU226956

PATIENT
  Sex: Female

DRUGS (1)
  1. CYCLOSPORINE [Suspect]
     Active Substance: CYCLOSPORINE
     Indication: Fibrillary glomerulonephritis
     Dosage: UNK
     Route: 065

REACTIONS (2)
  - Chronic kidney disease [Unknown]
  - Drug ineffective [Unknown]
